FAERS Safety Report 5793917-7 (Version None)
Quarter: 2008Q2

REPORT INFORMATION
  Report Type: 
  Country: None (occurrence: None)
  Receive Date: 20080627
  Receipt Date: 20080617
  Transmission Date: 20081010
  Serious: Yes (Hospitalization)
  Sender: FDA-Public Use
  Company Number: ES-PFIZER INC-2007081457

PATIENT
  Sex: Male

DRUGS (3)
  1. SU-011,248 [Suspect]
     Indication: METASTATIC RENAL CELL CARCINOMA
     Route: 048
     Dates: start: 20070502, end: 20070529
  2. OMEPRAZOLE [Concomitant]
     Dates: start: 20060814, end: 20070621
  3. PRIMPERAN TAB [Concomitant]
     Dates: start: 20060814, end: 20070621

REACTIONS (1)
  - CONVULSION [None]
